FAERS Safety Report 7897518 (Version 6)
Quarter: 2013Q2

REPORT INFORMATION
  Report Type: Report from Study
  Country: BR (occurrence: BR)
  Receive Date: 20110413
  Receipt Date: 20130626
  Transmission Date: 20140414
  Serious: Yes (Hospitalization)
  Sender: FDA-Public Use
  Company Number: PHHO2010BR15281

PATIENT
  Age: 60 Year
  Sex: Male
  Weight: 72 kg

DRUGS (6)
  1. AFINITOR [Suspect]
     Indication: METASTATIC RENAL CELL CARCINOMA
     Dosage: 10 MG, QD
     Route: 048
     Dates: start: 20091001, end: 20100529
  2. AVASTIN [Suspect]
     Indication: METASTATIC RENAL CELL CARCINOMA
     Dosage: 10 MG/KG, QW
     Dates: start: 20091001
  3. INTERFERON ALFA [Suspect]
     Indication: METASTATIC RENAL CELL CARCINOMA
     Dosage: UNK
     Route: 065
     Dates: start: 20091001, end: 20101110
  4. OMEPRAZOLE [Concomitant]
     Indication: PAIN PROPHYLAXIS
     Dosage: 10 MG, QD
     Route: 048
     Dates: start: 20100129
  5. LISADOR [Concomitant]
     Indication: HEADACHE
  6. LISADOR [Concomitant]
     Indication: MUSCULOSKELETAL CHEST PAIN

REACTIONS (3)
  - Hepatotoxicity [Recovered/Resolved]
  - Jaundice [Recovered/Resolved]
  - Pneumonia [Recovered/Resolved]
